FAERS Safety Report 14731635 (Version 2)
Quarter: 2018Q2

REPORT INFORMATION
  Report Type: Spontaneous
  Country: US (occurrence: US)
  Receive Date: 20180407
  Receipt Date: 20180427
  Transmission Date: 20180711
  Serious: Yes (Hospitalization, Other)
  Sender: FDA-Public Use
  Company Number: US-VIFOR (INTERNATIONAL) INC.-VIT-2018-03211

PATIENT
  Age: 66 Year
  Sex: Male
  Weight: 74.91 kg

DRUGS (23)
  1. VELTASSA [Suspect]
     Active Substance: PATIROMER
     Indication: HYPERKALAEMIA
     Route: 048
     Dates: start: 20180215
  2. ESTAZOLAM. [Concomitant]
     Active Substance: ESTAZOLAM
  3. VITAMINS NOS [Concomitant]
     Active Substance: VITAMINS
  4. LACTOBACILLUS ACIDOPHILUS [Concomitant]
     Active Substance: LACTOBACILLUS ACIDOPHILUS
  5. CARVEDILOL. [Concomitant]
     Active Substance: CARVEDILOL
  6. FUROSEMIDE. [Concomitant]
     Active Substance: FUROSEMIDE
  7. RESTORIL [Concomitant]
     Active Substance: TEMAZEPAM
  8. VELPHORO [Concomitant]
     Active Substance: FERRIC OXYHYDROXIDE
     Route: 048
  9. ATORVASTATIN CALCIUM. [Concomitant]
     Active Substance: ATORVASTATIN CALCIUM
  10. LIQUACEL [Concomitant]
  11. OMEPRAZOLE. [Concomitant]
     Active Substance: OMEPRAZOLE
  12. GLYCERYL TRINITRATE [Concomitant]
     Active Substance: NITROGLYCERIN
  13. PARACETAMOL [Concomitant]
     Active Substance: ACETAMINOPHEN
  14. LACTULOSE. [Concomitant]
     Active Substance: LACTULOSE
  15. AMLODIPINE BESILATE [Concomitant]
     Active Substance: AMLODIPINE BESYLATE
  16. FERROUS SULFATE. [Concomitant]
     Active Substance: FERROUS SULFATE
  17. SENSIPAR [Concomitant]
     Active Substance: CINACALCET HYDROCHLORIDE
  18. EMLA [Concomitant]
     Active Substance: LIDOCAINE\PRILOCAINE
  19. FISH OIL [Concomitant]
     Active Substance: FISH OIL
  20. GABAPENTIN. [Concomitant]
     Active Substance: GABAPENTIN
  21. ONDANSETRON HYDROCHLORIDE. [Concomitant]
     Active Substance: ONDANSETRON HYDROCHLORIDE
  22. PHOSLO [Concomitant]
     Active Substance: CALCIUM ACETATE
  23. ASCORBIC ACID. [Concomitant]
     Active Substance: ASCORBIC ACID

REACTIONS (8)
  - Pneumonia [Recovered/Resolved]
  - Atrial fibrillation [Recovered/Resolved]
  - Heart rate irregular [Recovered/Resolved]
  - Blood potassium decreased [Unknown]
  - Blood calcium decreased [Recovered/Resolved]
  - Dyspnoea [Recovered/Resolved]
  - Ventricular tachycardia [Recovered/Resolved]
  - Pulmonary oedema [Recovered/Resolved]

NARRATIVE: CASE EVENT DATE: 2018
